FAERS Safety Report 20561941 (Version 1)
Quarter: 2022Q1

REPORT INFORMATION
  Report Type: Spontaneous
  Country: US (occurrence: None)
  Receive Date: 20220307
  Receipt Date: 20220307
  Transmission Date: 20220423
  Serious: Yes (Death)
  Sender: FDA-Public Use
  Company Number: None

PATIENT
  Age: 66 Year
  Sex: Male
  Weight: 131.5 kg

DRUGS (1)
  1. SOTROVIMAB [Suspect]
     Active Substance: SOTROVIMAB

REACTIONS (6)
  - Oropharyngeal pain [None]
  - Hyperhidrosis [None]
  - Unresponsive to stimuli [None]
  - Bradycardia [None]
  - Apnoea [None]
  - Pulseless electrical activity [None]

NARRATIVE: CASE EVENT DATE: 20220211
